FAERS Safety Report 13086156 (Version 1)
Quarter: 2017Q1

REPORT INFORMATION
  Report Type: Spontaneous
  Country: FR (occurrence: FR)
  Receive Date: 20170104
  Receipt Date: 20170104
  Transmission Date: 20170428
  Serious: Yes (Hospitalization)
  Sender: FDA-Public Use
  Company Number: FR-MYLANLABS-2017M1000072

PATIENT

DRUGS (18)
  1. ARACYTINE [Suspect]
     Active Substance: CYTARABINE
     Dosage: 40 MG, UNK
     Route: 037
     Dates: start: 20160502
  2. METHOTREXATE MYLAN 2.5 MG/ML, SOLUTION FOR INJECTION [Suspect]
     Active Substance: METHOTREXATE
     Dosage: 15 MG, UNK
     Route: 037
     Dates: start: 20160519
  3. ARACYTINE [Suspect]
     Active Substance: CYTARABINE
     Dosage: 40 MG, UNK
     Route: 037
     Dates: start: 20160527
  4. HYDROCORTISONE UPJOHN [Suspect]
     Active Substance: HYDROCORTISONE
     Dosage: 20 MG, UNK
     Route: 037
     Dates: start: 20160601
  5. METHOTREXATE MYLAN 2.5 MG/ML, SOLUTION FOR INJECTION [Suspect]
     Active Substance: METHOTREXATE
     Dosage: 15 MG, UNK
     Route: 037
     Dates: start: 20160502
  6. METHOTREXATE MYLAN 2.5 MG/ML, SOLUTION FOR INJECTION [Suspect]
     Active Substance: METHOTREXATE
     Dosage: 15 MG, UNK
     Route: 037
     Dates: start: 20160601
  7. ARACYTINE [Suspect]
     Active Substance: CYTARABINE
     Dosage: 40 MG, UNK
     Route: 037
     Dates: start: 20160601
  8. HYDROCORTISONE UPJOHN [Suspect]
     Active Substance: HYDROCORTISONE
     Dosage: 20 MG, UNK
     Route: 037
     Dates: start: 20160502
  9. HYDROCORTISONE UPJOHN [Suspect]
     Active Substance: HYDROCORTISONE
     Dosage: 20 MG, UNK
     Route: 037
     Dates: start: 20160506
  10. METHOTREXATE MYLAN 2.5 MG/ML, SOLUTION FOR INJECTION [Suspect]
     Active Substance: METHOTREXATE
     Dosage: 15 MG, UNK
     Route: 037
     Dates: start: 20160506
  11. METHOTREXATE MYLAN 2.5 MG/ML, SOLUTION FOR INJECTION [Suspect]
     Active Substance: METHOTREXATE
     Dosage: 15 MG, UNK
     Route: 037
     Dates: start: 20160527
  12. HYDROCORTISONE UPJOHN [Suspect]
     Active Substance: HYDROCORTISONE
     Indication: PRODUCT USED FOR UNKNOWN INDICATION
     Dosage: 20 MG, UNK
     Route: 037
     Dates: start: 20160423
  13. ARACYTINE [Suspect]
     Active Substance: CYTARABINE
     Dosage: 40 MG, UNK
     Route: 037
     Dates: start: 20160506
  14. HYDROCORTISONE UPJOHN [Suspect]
     Active Substance: HYDROCORTISONE
     Dosage: 20 MG, UNK
     Route: 037
     Dates: start: 20160527
  15. METHOTREXATE MYLAN 2.5 MG/ML, SOLUTION FOR INJECTION [Suspect]
     Active Substance: METHOTREXATE
     Indication: PRODUCT USED FOR UNKNOWN INDICATION
     Dosage: 15 MG, UNK
     Route: 037
     Dates: start: 20160423
  16. ARACYTINE [Suspect]
     Active Substance: CYTARABINE
     Indication: PRODUCT USED FOR UNKNOWN INDICATION
     Dosage: 40 MG, UNK
     Route: 037
     Dates: start: 20160423
  17. ARACYTINE [Suspect]
     Active Substance: CYTARABINE
     Dosage: 40 MG, UNK
     Route: 037
     Dates: start: 20160519
  18. HYDROCORTISONE UPJOHN [Suspect]
     Active Substance: HYDROCORTISONE
     Dosage: 20 MG, UNK
     Route: 037
     Dates: start: 20160519

REACTIONS (10)
  - Headache [None]
  - Diplopia [None]
  - Sinus disorder [None]
  - Hyperreflexia [None]
  - Paraparesis [Not Recovered/Not Resolved]
  - Eyelid ptosis [None]
  - Burkitt^s lymphoma [None]
  - Blood testosterone decreased [None]
  - Aplasia [None]
  - Anal incontinence [Not Recovered/Not Resolved]
